FAERS Safety Report 6087028-3 (Version None)
Quarter: 2009Q1

REPORT INFORMATION
  Report Type: 
  Country: None (occurrence: None)
  Receive Date: 20090219
  Receipt Date: 20090205
  Transmission Date: 20090719
  Serious: Yes (Other)
  Sender: FDA-Public Use
  Company Number: 041168

PATIENT
  Sex: Male

DRUGS (1)
  1. CLARAVIS [Suspect]
     Dosage: ORAL
     Route: 048

REACTIONS (2)
  - PATERNAL DRUGS AFFECTING FOETUS [None]
  - PREGNANCY OF PARTNER [None]
